FAERS Safety Report 8749381 (Version 2)
Quarter: 2012Q4

REPORT INFORMATION
  Report Type: Spontaneous
  Country: FR (occurrence: None)
  Receive Date: 20120806
  Receipt Date: 20120831
  Transmission Date: 20130627
  Serious: Yes (Hospitalization)
  Sender: FDA-Public Use
  Company Number: DSA_58799_2012

PATIENT
  Age: 72 Year
  Sex: Female

DRUGS (7)
  1. FLAGYL [Suspect]
     Indication: PRODUCT USED FOR UNKNOWN INDICATION
     Dosage: (500 MG TID ORAL)
     Route: 048
     Dates: start: 201204
  2. ATACAND [Suspect]
     Indication: PRODUCT USED FOR UNKNOWN INDICATION
     Dosage: (DF ORAL)
     Route: 048
     Dates: start: 201204, end: 20120603
  3. NEXIUM [Suspect]
     Indication: PRODUCT USED FOR UNKNOWN INDICATION
     Dosage: (20 MG, DAILY ORAL)
     Route: 048
     Dates: start: 201204, end: 20120603
  4. ESIDRIX [Suspect]
     Indication: PRODUCT USED FOR UNKNOWN INDICATION
     Dosage: (DF ORAL)
     Route: 048
     Dates: start: 201204, end: 20120603
  5. PLAVIX [Concomitant]
  6. SECTRAL [Concomitant]
  7. PARACETAMOL [Concomitant]

REACTIONS (5)
  - VASCULAR PURPURA [None]
  - STAPHYLOCOCCAL INFECTION [None]
  - PURULENCE [None]
  - PLEURISY [None]
  - BLOOD CREATININE INCREASED [None]
